FAERS Safety Report 25824673 (Version 2)
Quarter: 2025Q4

REPORT INFORMATION
  Report Type: Spontaneous
  Country: IL (occurrence: IL)
  Receive Date: 20250919
  Receipt Date: 20251006
  Transmission Date: 20260118
  Serious: Yes (Life-Threatening, Hospitalization, Other)
  Sender: MERCK SHARP & DOHME LLC
  Company Number: IL-009507513-2328899

PATIENT
  Age: 42 Year
  Sex: Female
  Weight: 103 kg

DRUGS (2)
  1. PEMBROLIZUMAB [Suspect]
     Active Substance: PEMBROLIZUMAB
     Indication: Malignant melanoma
     Dosage: AT STANDARD DOSING
     Route: 042
     Dates: start: 20230906, end: 20231129
  2. ESCITALOPRAM [Concomitant]
     Active Substance: ESCITALOPRAM OXALATE
     Indication: Depressive symptom
     Route: 048

REACTIONS (4)
  - Renal tubular injury [Recovered/Resolved]
  - Acute kidney injury [Recovered/Resolved]
  - Nephrogenic diabetes insipidus [Recovered/Resolved]
  - Renal tubular acidosis [Recovered/Resolved]

NARRATIVE: CASE EVENT DATE: 20231211
